FAERS Safety Report 9204536 (Version 1)
Quarter: 2013Q2

REPORT INFORMATION
  Report Type: Spontaneous
  Country: US (occurrence: US)
  Receive Date: 20130402
  Receipt Date: 20130402
  Transmission Date: 20140414
  Serious: Yes (Other)
  Sender: FDA-Public Use
  Company Number: US-BAYER-2013-038306

PATIENT
  Age: 24 Year
  Sex: Female

DRUGS (1)
  1. MIRENA [Suspect]
     Indication: CONTRACEPTION
     Dosage: UNK
     Route: 015
     Dates: start: 20130228, end: 20130320

REACTIONS (4)
  - Pregnancy with contraceptive device [None]
  - Inappropriate schedule of drug administration [None]
  - Nausea [None]
  - Haemorrhage in pregnancy [None]
